FAERS Safety Report 6440929-6 (Version None)
Quarter: 2009Q4

REPORT INFORMATION
  Report Type: 
  Country: None (occurrence: None)
  Receive Date: 20091116
  Receipt Date: 20091103
  Transmission Date: 20100525
  Serious: Yes (Hospitalization, Other)
  Sender: FDA-Public Use
  Company Number: US-ELI_LILLY_AND_COMPANY-US200911001092

PATIENT
  Sex: Male

DRUGS (2)
  1. ALIMTA [Suspect]
     Dates: start: 20090924, end: 20091015
  2. CARBOPLATIN [Concomitant]

REACTIONS (4)
  - DEHYDRATION [None]
  - DIVERTICULITIS [None]
  - NAUSEA [None]
  - VOMITING [None]
